FAERS Safety Report 8558372-2 (Version None)
Quarter: 2012Q3

REPORT INFORMATION
  Report Type: 
  Country: None (occurrence: None)
  Receive Date: 20120801
  Receipt Date: 20120723
  Transmission Date: 20120928
  Serious: Yes (Life-Threatening, Hospitalization, Other)
  Sender: FDA-Public Use
  Company Number: US-BAXTER-2012BAX012739

PATIENT
  Age: 59 Year
  Sex: Female

DRUGS (1)
  1. TISSEEL VH [Suspect]
     Route: 065
     Dates: start: 20120625

REACTIONS (1)
  - PULMONARY EMBOLISM [None]
